FAERS Safety Report 9159091 (Version 1)
Quarter: 2013Q1

REPORT INFORMATION
  Report Type: Spontaneous
  Country: US (occurrence: None)
  Receive Date: 20130311
  Receipt Date: 20130311
  Transmission Date: 20140127
  Serious: Yes (Death, Hospitalization)
  Sender: FDA-Public Use
  Company Number: FK201300728

PATIENT
  Age: 62 Year
  Sex: Female
  Weight: 45 kg

DRUGS (3)
  1. CARBOPLATIN [Suspect]
     Indication: LUNG ADENOCARCINOMA STAGE IV
     Dosage: 658 MG, 1 IN 3 WK, INTRAVENOUS
     Route: 042
     Dates: start: 20120302, end: 20120504
  2. MORAB-003 [Suspect]
     Indication: LUNG ADENOCARCINOMA STAGE IV
     Route: 042
     Dates: start: 20120302, end: 20120504
  3. PEMETREXED [Suspect]
     Indication: LUNG ADENOCARCINOMA STAGE IV
     Dosage: 645 MG/KG, 1 IN 3 WK, INTRAVENOUS
     Route: 042
     Dates: start: 20120302, end: 20120504

REACTIONS (2)
  - Neutropenia [None]
  - Platelet count decreased [None]
